FAERS Safety Report 9293630 (Version 1)
Quarter: 2013Q2

REPORT INFORMATION
  Report Type: Spontaneous
  Country: US (occurrence: US)
  Receive Date: 20130516
  Receipt Date: 20130516
  Transmission Date: 20140414
  Serious: No
  Sender: FDA-Public Use
  Company Number: US-BANPHARM-20120348

PATIENT
  Age: 55 Year
  Sex: Female
  Weight: 81.64 kg

DRUGS (2)
  1. IBUPROFEN CAPSULES 200 MG [Suspect]
     Indication: MYOSITIS
     Dosage: 2 CAPSULES, PRN,
     Route: 048
  2. VITAMINS [Concomitant]

REACTIONS (2)
  - Abdominal pain upper [Recovering/Resolving]
  - Hyperhidrosis [Unknown]
